FAERS Safety Report 14029514 (Version 1)
Quarter: 2017Q4

REPORT INFORMATION
  Report Type: Spontaneous
  Country: US (occurrence: US)
  Receive Date: 20171002
  Receipt Date: 20171002
  Transmission Date: 20180321
  Serious: Yes (Other)
  Sender: FDA-Public Use
  Company Number: None

PATIENT
  Age: 67 Year
  Sex: Female
  Weight: 57.6 kg

DRUGS (22)
  1. FLUTCASONE [Concomitant]
  2. IT. D [Concomitant]
  3. FOLIC ACID. [Concomitant]
     Active Substance: FOLIC ACID
  4. IBUPROPHEN [Concomitant]
     Active Substance: IBUPROFEN
  5. BURDOCK [Concomitant]
  6. BUTCHER^SBROOM [Concomitant]
  7. XARELTO [Concomitant]
     Active Substance: RIVAROXABAN
  8. FIBER THERAPY [Concomitant]
     Active Substance: METHYLCELLULOSE (4000 MPA.S)
  9. LIVER ESSENTIALS BLEND [Concomitant]
  10. ASPIRIN. [Concomitant]
     Active Substance: ASPIRIN
  11. MELATONIN [Concomitant]
     Active Substance: MELATONIN
  12. DILTIAZ ER(XR)180/24 CAP MYLAN [Suspect]
     Active Substance: DILTIAZEM
     Indication: ATRIAL FIBRILLATION
     Dosage: ?          QUANTITY:1 CAPSULE(S);?
     Route: 048
  13. MULTI-VITAMIN [Concomitant]
     Active Substance: .ALPHA.-TOCOPHEROL ACETATE, DL-\ASCORBIC ACID\CYANOCOBALAMIN\FLUORIDE ION\FOLIC ACID\NIACIN\PYRIDOXINE\RIBOFLAVIN\THIAMINE\VITAMIN A\VITAMIN D
  14. CORTISONE [Concomitant]
     Active Substance: CORTISONE\HYDROCORTISONE
  15. VENTOLIN [Concomitant]
     Active Substance: ALBUTEROL SULFATE
  16. TUMERIC [Concomitant]
     Active Substance: HERBALS\TURMERIC
  17. BIOTIN [Concomitant]
     Active Substance: BIOTIN
  18. MAGNESIUM [Concomitant]
     Active Substance: MAGNESIUM
  19. STRESSBCOMPLEX [Concomitant]
  20. SELENIUM [Concomitant]
     Active Substance: SELENIUM
  21. HAWTHORNE [Concomitant]
  22. OMEGA 3,6,9 [Concomitant]

REACTIONS (3)
  - Peripheral swelling [None]
  - Blister [None]
  - Self-medication [None]

NARRATIVE: CASE EVENT DATE: 20170726
